FAERS Safety Report 24344053 (Version 1)
Quarter: 2024Q3

REPORT INFORMATION
  Report Type: Spontaneous
  Country: US (occurrence: None)
  Receive Date: 20240920
  Receipt Date: 20240920
  Transmission Date: 20241017
  Serious: Yes (Death)
  Sender: Public
  Company Number: None

PATIENT
  Age: 68 Year
  Sex: Female

DRUGS (24)
  1. REVLIMID [Suspect]
     Active Substance: LENALIDOMIDE
     Indication: Plasma cell myeloma
     Dosage: ONCE CAPSULE (15MG) DAILY  FOR 21 DAYS THEN 7 OFF  ORAL ?
     Route: 048
     Dates: start: 20240430
  2. BENADRYL [Concomitant]
     Active Substance: DIPHENHYDRAMINE HYDROCHLORIDE
  3. PEPCID [Concomitant]
     Active Substance: FAMOTIDINE
  4. SINGULAIR [Concomitant]
     Active Substance: MONTELUKAST SODIUM
  5. TYLENOL [Concomitant]
     Active Substance: ACETAMINOPHEN
  6. ASPIRIN 81 [Concomitant]
  7. ACYCLOVIR [Concomitant]
     Active Substance: ACYCLOVIR
  8. ATORVASTATIN [Concomitant]
     Active Substance: ATORVASTATIN
  9. BIOTIN [Concomitant]
     Active Substance: BIOTIN
  10. Calcium/Vit D Supplement [Concomitant]
  11. Carvediolol [Concomitant]
  12. DEXAMETHASONE [Concomitant]
     Active Substance: DEXAMETHASONE
  13. FISH OIL [Concomitant]
     Active Substance: FISH OIL
  14. HYDROXYCHLOROQUINE [Concomitant]
     Active Substance: HYDROXYCHLOROQUINE
  15. LOSARTAN [Concomitant]
  16. VITAMINS [Concomitant]
     Active Substance: VITAMINS
  17. SODIUM BICARBONATE [Concomitant]
     Active Substance: SODIUM BICARBONATE
  18. SPIRONOLACTONE [Concomitant]
     Active Substance: SPIRONOLACTONE
  19. VITAMIN B12 [Concomitant]
     Active Substance: CYANOCOBALAMIN
  20. VITAMIN C [Concomitant]
     Active Substance: ASCORBIC ACID
  21. VITAMIN D [Concomitant]
     Active Substance: VITAMIN D NOS
  22. VITAMIN E [Concomitant]
     Active Substance: .ALPHA.-TOCOPHEROL
  23. ZINC [Concomitant]
     Active Substance: ZINC
  24. HERBALS [Concomitant]
     Active Substance: HERBALS

REACTIONS (4)
  - Lung neoplasm malignant [None]
  - Full blood count abnormal [None]
  - Thrombocytopenia [None]
  - Refusal of treatment by patient [None]

NARRATIVE: CASE EVENT DATE: 20240913
